APPROVED DRUG PRODUCT: OSELTAMIVIR PHOSPHATE
Active Ingredient: OSELTAMIVIR PHOSPHATE
Strength: EQ 75MG BASE
Dosage Form/Route: CAPSULE;ORAL
Application: A208348 | Product #003 | TE Code: AB
Applicant: LUPIN INC
Approved: Jan 9, 2018 | RLD: No | RS: No | Type: RX